FAERS Safety Report 15862950 (Version 3)
Quarter: 2019Q1

REPORT INFORMATION
  Report Type: Spontaneous
  Country: US (occurrence: US)
  Receive Date: 20190124
  Receipt Date: 20190305
  Transmission Date: 20190417
  Serious: Yes (Other)
  Sender: FDA-Public Use
  Company Number: US-ASTRAZENECA-2019SE12460

PATIENT
  Sex: Male
  Weight: 83.9 kg

DRUGS (4)
  1. PROMETHAZINE WITH CODEINE [Concomitant]
     Active Substance: CODEINE PHOSPHATE\PROMETHAZINE HYDROCHLORIDE
     Indication: COUGH
     Dosage: UNKNOWN
     Route: 048
  2. ALBUTEROL SULFATE. [Concomitant]
     Active Substance: ALBUTEROL SULFATE
     Route: 065
  3. TUDORZA PRESSAIR [Suspect]
     Active Substance: ACLIDINIUM BROMIDE
     Indication: CHRONIC OBSTRUCTIVE PULMONARY DISEASE
     Route: 055
     Dates: start: 20160101
  4. PREDNISONE. [Concomitant]
     Active Substance: PREDNISONE
     Indication: COUGH
     Route: 048

REACTIONS (11)
  - Device breakage [Unknown]
  - Renal disorder [Unknown]
  - Neoplasm malignant [Unknown]
  - Dyspnoea [Unknown]
  - Bronchitis [Unknown]
  - Coma [Unknown]
  - Intentional device misuse [Unknown]
  - Device issue [Unknown]
  - Immune system disorder [Unknown]
  - Pneumonia [Unknown]
  - Malaise [Unknown]
